FAERS Safety Report 25709486 (Version 3)
Quarter: 2025Q3

REPORT INFORMATION
  Report Type: Spontaneous
  Country: US (occurrence: US)
  Receive Date: 20250821
  Receipt Date: 20250901
  Transmission Date: 20251020
  Serious: Yes (Death, Hospitalization, Other)
  Sender: BOEHRINGER INGELHEIM
  Company Number: US-Komodo Health-a23aa000009d5CLAAY

PATIENT
  Age: 81 Year
  Sex: Male

DRUGS (7)
  1. JARDIANCE [Suspect]
     Active Substance: EMPAGLIFLOZIN
     Indication: Cardiac failure congestive
     Dates: start: 20241004, end: 20250219
  2. JARDIANCE [Suspect]
     Active Substance: EMPAGLIFLOZIN
     Indication: Diabetes mellitus
  3. AMIODARONE [Concomitant]
     Active Substance: AMIODARONE
     Indication: Product used for unknown indication
  4. AMLODIPINE [Concomitant]
     Active Substance: AMLODIPINE BESYLATE
     Indication: Product used for unknown indication
     Dates: start: 20241216
  5. APIXABAN [Concomitant]
     Active Substance: APIXABAN
     Indication: Product used for unknown indication
  6. ATORVASTATIN [Concomitant]
     Active Substance: ATORVASTATIN
     Indication: Product used for unknown indication
  7. CARVEDILOL [Concomitant]
     Active Substance: CARVEDILOL
     Indication: Product used for unknown indication

REACTIONS (15)
  - Heart failure with reduced ejection fraction [Fatal]
  - Hypertension [Fatal]
  - Acute respiratory failure [Fatal]
  - Infection [Unknown]
  - Decubitus ulcer [Unknown]
  - Weight decreased [Unknown]
  - Atrial fibrillation [Unknown]
  - Enteral nutrition [Unknown]
  - Urinary tract infection [Unknown]
  - Vomiting [Unknown]
  - Dysphagia [Unknown]
  - Mobility decreased [Unknown]
  - Decreased appetite [Unknown]
  - Off label use [Unknown]
  - Influenza [Unknown]
